FAERS Safety Report 11742675 (Version 24)
Quarter: 2019Q1

REPORT INFORMATION
  Report Type: Spontaneous
  Country: US (occurrence: US)
  Receive Date: 20151116
  Receipt Date: 20190316
  Transmission Date: 20190417
  Serious: Yes (Life-Threatening, Congenital Anomaly, Other)
  Sender: FDA-Public Use
  Company Number: PHEH2015US023565

PATIENT
  Sex: Male

DRUGS (3)
  1. ZOFRAN [Suspect]
     Active Substance: ONDANSETRON HYDROCHLORIDE
     Indication: FOETAL EXPOSURE DURING PREGNANCY
     Route: 064
  2. ZOFRAN ODT [Suspect]
     Active Substance: ONDANSETRON HYDROCHLORIDE
     Indication: FOETAL EXPOSURE DURING PREGNANCY
     Route: 064
  3. ONDANSETRON. [Suspect]
     Active Substance: ONDANSETRON
     Indication: FOETAL EXPOSURE DURING PREGNANCY
     Dosage: MOTHER DOSE: 4 MG FIVE TIMES DAILY
     Route: 064

REACTIONS (37)
  - Ventricular septal defect [Unknown]
  - Congenital anomaly [Unknown]
  - Patent ductus arteriosus [Unknown]
  - Foetal exposure during pregnancy [Unknown]
  - Rhinitis allergic [Unknown]
  - Cardiomegaly [Unknown]
  - Cardiac murmur [Unknown]
  - Jaundice neonatal [Unknown]
  - Pulmonary congestion [Unknown]
  - Otorrhoea [Unknown]
  - Stridor [Unknown]
  - Atrial septal defect [Unknown]
  - Coarctation of the aorta [Unknown]
  - Otitis media chronic [Unknown]
  - Anhedonia [Unknown]
  - Nasal congestion [Unknown]
  - Wheezing [Unknown]
  - Peripheral venous disease [Unknown]
  - Heart disease congenital [Unknown]
  - Injury [Unknown]
  - Upper respiratory tract infection [Unknown]
  - Pain [Unknown]
  - Decreased appetite [Unknown]
  - Asthma [Unknown]
  - Pneumonia pneumococcal [Unknown]
  - Deafness [Unknown]
  - Laryngomalacia [Unknown]
  - Otitis media acute [Unknown]
  - Dysphagia [Unknown]
  - Anxiety [Unknown]
  - Pneumothorax [Unknown]
  - Developmental delay [Unknown]
  - Rhinorrhoea [Unknown]
  - Viral infection [Unknown]
  - Cough [Unknown]
  - Dyspnoea [Unknown]
  - Emphysema [Unknown]
